FAERS Safety Report 21387289 (Version 1)
Quarter: 2022Q3

REPORT INFORMATION
  Report Type: Spontaneous
  Country: JP (occurrence: JP)
  Receive Date: 20220928
  Receipt Date: 20220928
  Transmission Date: 20221026
  Serious: Yes (Other)
  Sender: FDA-Public Use
  Company Number: JP-CHUGAI-2022037002

PATIENT
  Age: 63 Year
  Sex: Female

DRUGS (2)
  1. AVASTIN [Suspect]
     Active Substance: BEVACIZUMAB
     Indication: Malignant glioma
     Route: 041
  2. TEMODAL [Concomitant]
     Active Substance: TEMOZOLOMIDE
     Indication: Malignant glioma
     Route: 065

REACTIONS (2)
  - Myelosuppression [Unknown]
  - Hypothyroidism [Unknown]
